FAERS Safety Report 23990174 (Version 2)
Quarter: 2024Q2

REPORT INFORMATION
  Report Type: Spontaneous
  Country: RS (occurrence: RS)
  Receive Date: 20240619
  Receipt Date: 20240626
  Transmission Date: 20240716
  Serious: Yes (Death, Other)
  Sender: FDA-Public Use
  Company Number: RS-009507513-2405SRB006343

PATIENT
  Sex: Male

DRUGS (1)
  1. KEYTRUDA [Suspect]
     Active Substance: PEMBROLIZUMAB
     Indication: Head and neck cancer
     Dosage: UNK, EVERY 21 DAYS, Q3W(RECEIVED 3 CYCLES)
     Dates: start: 202305, end: 202306

REACTIONS (4)
  - Death [Fatal]
  - Malignant neoplasm progression [Unknown]
  - Feeding disorder [Unknown]
  - Orocutaneous fistula [Unknown]

NARRATIVE: CASE EVENT DATE: 20230101
